FAERS Safety Report 7405222-3 (Version None)
Quarter: 2011Q2

REPORT INFORMATION
  Report Type: 
  Country: None (occurrence: None)
  Receive Date: 20110411
  Receipt Date: 20110117
  Transmission Date: 20111010
  Serious: Yes (Other)
  Sender: FDA-Public Use
  Company Number: US-BAYER-201019713NA

PATIENT
  Age: 27 Year
  Sex: Female
  Weight: 127.27 kg

DRUGS (5)
  1. SPIRONOLACTONE [Concomitant]
     Dates: start: 20060101, end: 20080101
  2. LIPITOR [Concomitant]
  3. IMITREX [Concomitant]
  4. YAZ [Suspect]
     Route: 048
     Dates: start: 20070101, end: 20080101
  5. YASMIN [Suspect]
     Route: 048
     Dates: start: 20070101, end: 20080101

REACTIONS (5)
  - ECTOPIC PREGNANCY [None]
  - ABORTION SPONTANEOUS [None]
  - INJURY [None]
  - PREGNANCY ON ORAL CONTRACEPTIVE [None]
  - OVARIAN CYST [None]
